FAERS Safety Report 8232558-9 (Version None)
Quarter: 2012Q1

REPORT INFORMATION
  Report Type: 
  Country: None (occurrence: None)
  Receive Date: 20120323
  Receipt Date: 20120320
  Transmission Date: 20120608
  Serious: Yes (Hospitalization, Other)
  Sender: FDA-Public Use
  Company Number: PHHO2008US13729

PATIENT
  Sex: Male
  Weight: 108.3 kg

DRUGS (4)
  1. LBH589 [Suspect]
     Indication: PROSTATE CANCER
     Dosage: 15 MG/M2, UNK
     Route: 042
     Dates: start: 20080923, end: 20081223
  2. DOCETAXEL [Suspect]
     Indication: PROSTATE CANCER
     Dosage: 75 MG/M2, UNK
     Route: 042
     Dates: start: 20080923
  3. BETA BLOCKING AGENTS [Suspect]
     Dosage: UNK
     Dates: start: 20081108
  4. PREDNISONE TAB [Suspect]
     Indication: PROSTATE CANCER
     Dosage: 5 MG, BID
     Route: 048

REACTIONS (13)
  - BRADYCARDIA [None]
  - PNEUMONIA [None]
  - GASTROINTESTINAL HAEMORRHAGE [None]
  - HAEMOGLOBIN DECREASED [None]
  - BLOOD BILIRUBIN INCREASED [None]
  - FULL BLOOD COUNT ABNORMAL [None]
  - SYNCOPE [None]
  - DIZZINESS [None]
  - MUSCULAR WEAKNESS [None]
  - ELECTROCARDIOGRAM ST SEGMENT DEPRESSION [None]
  - NEUTROPENIA [None]
  - PLATELET COUNT DECREASED [None]
  - DUODENAL ULCER [None]
